FAERS Safety Report 5923113-1 (Version None)
Quarter: 2008Q4

REPORT INFORMATION
  Report Type: 
  Country: None (occurrence: None)
  Receive Date: 20081018
  Receipt Date: 20081006
  Transmission Date: 20090506
  Serious: Yes (Death)
  Sender: FDA-Public Use
  Company Number: US-PFIZER INC-2008086404

PATIENT

DRUGS (1)
  1. ZITHROMAX [Suspect]

REACTIONS (2)
  - DEATH [None]
  - DRUG ADMINISTRATION ERROR [None]
